FAERS Safety Report 4552794-2 (Version None)
Quarter: 2005Q1

REPORT INFORMATION
  Report Type: 
  Country: None (occurrence: None)
  Receive Date: 20050114
  Receipt Date: 20050103
  Transmission Date: 20050727
  Serious: Yes (Hospitalization, Congenital Anomaly)
  Sender: FDA-Public Use
  Company Number: FR-ROCHE-391105

PATIENT
  Age: 26 Year
  Sex: Female

DRUGS (2)
  1. LARIAM [Suspect]
     Indication: DRUG USE FOR UNKNOWN INDICATION
     Route: 065
     Dates: start: 20030811, end: 20030917
  2. LYSINE ACETYLSALICYLATE [Suspect]
     Indication: PRE-ECLAMPSIA
     Route: 065
     Dates: start: 20031125, end: 20031230

REACTIONS (5)
  - ABORTION INDUCED [None]
  - DRUG EXPOSURE DURING PREGNANCY [None]
  - OLIGOHYDRAMNIOS [None]
  - PREMATURE RUPTURE OF MEMBRANES [None]
  - TALIPES [None]
